FAERS Safety Report 9422008 (Version 1)
Quarter: 2013Q3

REPORT INFORMATION
  Report Type: Spontaneous
  Country: US (occurrence: None)
  Receive Date: 20130725
  Receipt Date: 20130725
  Transmission Date: 20140515
  Serious: Yes (Disabling, Other)
  Sender: FDA-Public Use
  Company Number: None

PATIENT
  Age: 61 Year
  Sex: Female
  Weight: 58.97 kg

DRUGS (10)
  1. EXFORGE [Suspect]
     Indication: HYPERTENSION
     Dosage: 1 PER DAY HAVE HAD 30 OR 90 DAY ADMINISTRATION ONE IN THE MRONING ORALLY BY MOUTH
     Route: 048
     Dates: start: 20110501, end: 20130701
  2. BYSTOLIC [Concomitant]
  3. RAMIPRIL [Concomitant]
  4. VITAMIN B12 [Concomitant]
  5. VITAMIN D3 [Concomitant]
  6. VITAMIN C [Concomitant]
  7. COQ10 [Concomitant]
  8. MAGNESIUM [Concomitant]
  9. GINGER ROOT [Concomitant]
  10. CLARITIN [Concomitant]

REACTIONS (2)
  - Neuropathy peripheral [None]
  - Local swelling [None]
